FAERS Safety Report 11345271 (Version 2)
Quarter: 2015Q3

REPORT INFORMATION
  Report Type: Report from Study
  Country: US (occurrence: US)
  Receive Date: 20150806
  Receipt Date: 20150807
  Transmission Date: 20151125
  Serious: No
  Sender: FDA-Public Use
  Company Number: US-ABBVIE-15P-163-1411218-00

PATIENT
  Age: 59 Year
  Sex: Female

DRUGS (6)
  1. OLANZAPINE. [Concomitant]
     Active Substance: OLANZAPINE
     Indication: INSOMNIA
  2. SIMVASTATIN. [Concomitant]
     Active Substance: SIMVASTATIN
     Indication: PRODUCT USED FOR UNKNOWN INDICATION
  3. ZANTAC [Concomitant]
     Active Substance: RANITIDINE HYDROCHLORIDE
     Indication: PRODUCT USED FOR UNKNOWN INDICATION
  4. VIEKIRA PAK [Suspect]
     Active Substance: DASABUVIR\OMBITASVIR\PARITAPREVIR\RITONAVIR
     Indication: HEPATITIS C
     Dosage: 2 PINK TABLETS WITH 1 BEIGE IN THE MORNING; 1 BEIGE TABLET IN EVENING
     Route: 048
     Dates: start: 20150607
  5. CALCIUM [Concomitant]
     Active Substance: CALCIUM
     Indication: PRODUCT USED FOR UNKNOWN INDICATION
  6. FISH OIL [Concomitant]
     Active Substance: FISH OIL
     Indication: PRODUCT USED FOR UNKNOWN INDICATION

REACTIONS (4)
  - Abdominal discomfort [Not Recovered/Not Resolved]
  - Fatigue [Unknown]
  - Ocular icterus [Recovered/Resolved]
  - Yellow skin [Recovered/Resolved]

NARRATIVE: CASE EVENT DATE: 20150607
